FAERS Safety Report 22305332 (Version 2)
Quarter: 2023Q2

REPORT INFORMATION
  Report Type: Spontaneous
  Country: SE (occurrence: SE)
  Receive Date: 20230510
  Receipt Date: 20230518
  Transmission Date: 20230722
  Serious: Yes (Death, Other)
  Sender: FDA-Public Use
  Company Number: SE-JAZZ PHARMACEUTICALS-2023-SE-010209

PATIENT
  Age: 33 Year
  Sex: Male

DRUGS (8)
  1. XYREM [Suspect]
     Active Substance: SODIUM OXYBATE
     Indication: Product used for unknown indication
     Dosage: UNK
  2. FLUNITRAZEPAM [Suspect]
     Active Substance: FLUNITRAZEPAM
     Indication: Product used for unknown indication
     Dosage: UNK
  3. ALCOHOL [Suspect]
     Active Substance: ALCOHOL
     Indication: Alcohol use
     Dosage: UNK
  4. DIAZEPAM [Suspect]
     Active Substance: DIAZEPAM
     Indication: Product used for unknown indication
     Dosage: UNK
  5. MIRTAZAPINE [Suspect]
     Active Substance: MIRTAZAPINE
     Indication: Product used for unknown indication
     Dosage: UNK
  6. OXYBATE [Suspect]
     Active Substance: OXYBATE
     Indication: Product used for unknown indication
     Dosage: UNK
  7. MORPHINE SULFATE [Suspect]
     Active Substance: MORPHINE SULFATE
     Indication: Product used for unknown indication
     Dosage: UNK
  8. PROPIOMAZINE MALEATE [Suspect]
     Active Substance: PROPIOMAZINE MALEATE
     Indication: Product used for unknown indication
     Dosage: UNK

REACTIONS (5)
  - Toxicity to various agents [Fatal]
  - Drug interaction [Fatal]
  - Poisoning [Fatal]
  - Overdose [Fatal]
  - Off label use [Unknown]
